FAERS Safety Report 9971749 (Version 1)
Quarter: 2014Q1

REPORT INFORMATION
  Report Type: Report from Study
  Country: US (occurrence: US)
  Receive Date: 20140306
  Receipt Date: 20140306
  Transmission Date: 20141002
  Serious: No
  Sender: FDA-Public Use
  Company Number: US-ABBVIE-13P-163-1153467-00

PATIENT
  Sex: Female
  Weight: 66.28 kg

DRUGS (2)
  1. HUMIRA [Suspect]
     Indication: PSORIATIC ARTHROPATHY
     Dates: end: 201304
  2. HUMIRA [Suspect]
     Indication: PSORIASIS
     Dates: start: 201309, end: 201309

REACTIONS (5)
  - Psoriasis [Recovering/Resolving]
  - Psoriasis [Recovering/Resolving]
  - Psoriasis [Recovering/Resolving]
  - Psoriasis [Recovering/Resolving]
  - Pain [Recovering/Resolving]
